FAERS Safety Report 6394765-X (Version None)
Quarter: 2009Q4

REPORT INFORMATION
  Report Type: 
  Country: None (occurrence: None)
  Receive Date: 20091009
  Receipt Date: 20090821
  Transmission Date: 20100525
  Serious: No
  Sender: FDA-Public Use
  Company Number: US-BAYER-200931180NA

PATIENT
  Age: 35 Year
  Sex: Female

DRUGS (3)
  1. MIRENA [Suspect]
     Indication: CONTRACEPTION
     Route: 015
     Dates: start: 20040901, end: 20090801
  2. MISOPROSTOL [Concomitant]
     Indication: UTERINE CERVIX DILATION PROCEDURE
     Dosage: 2 PILLS GIVEN THE NIGHT BEFORE REMOVAL OF MIRENA
  3. LIDOCAINE [Concomitant]
     Indication: VAGINAL HAEMORRHAGE

REACTIONS (3)
  - AMENORRHOEA [None]
  - POST PROCEDURAL HAEMORRHAGE [None]
  - PROCEDURAL PAIN [None]
